FAERS Safety Report 14667754 (Version 1)
Quarter: 2018Q1

REPORT INFORMATION
  Report Type: Spontaneous
  Country: US (occurrence: US)
  Receive Date: 20180322
  Receipt Date: 20180322
  Transmission Date: 20180509
  Serious: No
  Sender: FDA-Public Use
  Company Number: US-PFIZER INC-2017547081

PATIENT
  Age: 1 Year
  Sex: Male

DRUGS (1)
  1. EUCRISA [Suspect]
     Active Substance: CRISABOROLE
     Dosage: APPLY A THIN LAYER TO THE AFFECTED AREA, TWO TIMES PER DAY FOR 30 DAYS
     Route: 061
     Dates: start: 201712, end: 201712

REACTIONS (3)
  - Erythema [Unknown]
  - Drug administered to patient of inappropriate age [Unknown]
  - Skin irritation [Unknown]
